FAERS Safety Report 9103969 (Version 2)
Quarter: 2013Q1

REPORT INFORMATION
  Report Type: Spontaneous
  Country: US (occurrence: US)
  Receive Date: 20130219
  Receipt Date: 20130306
  Transmission Date: 20140127
  Serious: No
  Sender: FDA-Public Use
  Company Number: US-PFIZER INC-2013059956

PATIENT
  Age: 65 Year
  Sex: Male

DRUGS (1)
  1. INLYTA [Suspect]
     Indication: RENAL CANCER
     Dosage: 5 MG, 2X/DAY
     Dates: start: 20130131

REACTIONS (3)
  - Hypertension [Unknown]
  - Headache [Unknown]
  - Arthralgia [Unknown]
